FAERS Safety Report 16173073 (Version 2)
Quarter: 2019Q2

REPORT INFORMATION
  Report Type: Spontaneous
  Country: US (occurrence: US)
  Receive Date: 20190409
  Receipt Date: 20190416
  Transmission Date: 20190711
  Serious: Yes (Hospitalization, Other)
  Sender: FDA-Public Use
  Company Number: US-SA-2019SA094002

PATIENT
  Age: 75 Year
  Sex: Male

DRUGS (1)
  1. CLOPIDOGREL BISULFATE. [Suspect]
     Active Substance: CLOPIDOGREL BISULFATE

REACTIONS (6)
  - Haemoptysis [Unknown]
  - Dyspnoea [Unknown]
  - Renal impairment [Unknown]
  - Haemodynamic instability [Unknown]
  - Pulmonary alveolar haemorrhage [Unknown]
  - Granulomatosis with polyangiitis [Unknown]
